FAERS Safety Report 20584923 (Version 1)
Quarter: 2022Q1

REPORT INFORMATION
  Report Type: Report from Study
  Country: US (occurrence: US)
  Receive Date: 20220311
  Receipt Date: 20220311
  Transmission Date: 20220423
  Serious: No
  Sender: FDA-Public Use
  Company Number: US-NOVARTISTESTPH-NVSC2022US057480

PATIENT
  Sex: Male

DRUGS (1)
  1. ENTRESTO [Suspect]
     Active Substance: SACUBITRIL\VALSARTAN
     Indication: Product used for unknown indication
     Dosage: UNK, STARTED AT LEAST 5 OR 6 YEARS AGO (1 TABLET IN THE MORNING AND HALF A TABLET IN THE EVENING)
     Route: 048

REACTIONS (3)
  - Hypoacusis [Unknown]
  - Wrong technique in product usage process [Unknown]
  - Prescribed underdose [Unknown]
